FAERS Safety Report 6376647-2 (Version None)
Quarter: 2009Q3

REPORT INFORMATION
  Report Type: 
  Country: None (occurrence: None)
  Receive Date: 20090925
  Receipt Date: 20090922
  Transmission Date: 20100115
  Serious: Yes (Death)
  Sender: FDA-Public Use
  Company Number: PHHY2009DE35460

PATIENT
  Sex: Female
  Weight: 58 kg

DRUGS (6)
  1. CGS 20267 T30748+ [Suspect]
     Indication: BREAST CANCER
     Dosage: 2.5 MG DAILY
     Route: 048
     Dates: start: 20081124, end: 20090608
  2. CHEMOTHERAPEUTICS NOS [Concomitant]
  3. HERCEPTIN [Concomitant]
  4. BISOPROLOL FUMARATE [Concomitant]
     Dosage: 5 MG
  5. LASIX [Concomitant]
     Dosage: 40 MG
  6. REMERGIL [Concomitant]
     Dosage: 50 MG

REACTIONS (5)
  - HEPATIC FAILURE [None]
  - MALIGNANT NEOPLASM PROGRESSION [None]
  - METASTASES TO LIVER [None]
  - METASTASIS [None]
  - RENAL FAILURE [None]
